FAERS Safety Report 9439153 (Version 2)
Quarter: 2013Q4

REPORT INFORMATION
  Report Type: Spontaneous
  Country: GB (occurrence: GB)
  Receive Date: 20130802
  Receipt Date: 20131112
  Transmission Date: 20140711
  Serious: Yes (Other)
  Sender: FDA-Public Use
  Company Number: GB-ASTRAZENECA-2013SE57052

PATIENT
  Age: 70 Year
  Sex: Male
  Weight: 83.5 kg

DRUGS (11)
  1. OMEPRAZOLE [Suspect]
     Dosage: TAKEN ONCE APPROXIMATELY 5 TO 8 YEARS AGO
     Route: 048
  2. OMEPRAZOLE [Suspect]
     Route: 048
     Dates: start: 20130702, end: 20130706
  3. WOCKHARDT UK NAPROXEN [Suspect]
     Indication: OSTEOARTHRITIS
     Route: 065
     Dates: start: 20130702, end: 20130705
  4. CLOPIDOGREL [Concomitant]
  5. COLESEVELAM [Concomitant]
  6. DILTIAZEM [Concomitant]
     Indication: BLOOD PRESSURE ABNORMAL
  7. EPLERENONE [Concomitant]
     Indication: BLOOD PRESSURE ABNORMAL
  8. JANUVIA [Concomitant]
     Indication: DIABETES MELLITUS
  9. OMACOR [Concomitant]
     Indication: BLOOD CHOLESTEROL INCREASED
  10. ROSUVASTATIN [Concomitant]
     Indication: BLOOD CHOLESTEROL INCREASED
  11. TESTOGEL [Concomitant]

REACTIONS (8)
  - Activities of daily living impaired [Not Recovered/Not Resolved]
  - Discomfort [Not Recovered/Not Resolved]
  - Feeling abnormal [Not Recovered/Not Resolved]
  - Inflammation [Not Recovered/Not Resolved]
  - Non-cardiac chest pain [Not Recovered/Not Resolved]
  - Malaise [Not Recovered/Not Resolved]
  - Abdominal pain [Not Recovered/Not Resolved]
  - Abdominal discomfort [Not Recovered/Not Resolved]
